FAERS Safety Report 4317794-6 (Version None)
Quarter: 2004Q1

REPORT INFORMATION
  Report Type: 
  Country: None (occurrence: None)
  Receive Date: 20040316
  Receipt Date: 20040218
  Transmission Date: 20041129
  Serious: Yes (Other)
  Sender: FDA-Public Use
  Company Number: PHBS2004JP02520

PATIENT
  Age: 32 Year
  Sex: Male

DRUGS (3)
  1. LOPRESSOR [Suspect]
     Indication: CARDIOMYOPATHY
     Route: 048
     Dates: start: 20011201
  2. DIURETICS [Concomitant]
  3. ACE INHIBITOR NOS [Concomitant]

REACTIONS (3)
  - ASTHMA [None]
  - CARDIAC FAILURE [None]
  - DRUG INEFFECTIVE [None]
